FAERS Safety Report 8518083-6 (Version None)
Quarter: 2012Q3

REPORT INFORMATION
  Report Type: 
  Country: None (occurrence: None)
  Receive Date: 20120718
  Receipt Date: 20111116
  Transmission Date: 20120928
  Serious: No
  Sender: FDA-Public Use
  Company Number: US-BRISTOL-MYERS SQUIBB COMPANY-16050957

PATIENT
  Age: 61 Year
  Sex: Male

DRUGS (1)
  1. COUMADIN [Suspect]
     Dosage: PRESCRIPTION NO:352969
     Dates: start: 20090901

REACTIONS (2)
  - SWELLING [None]
  - CONTUSION [None]
